FAERS Safety Report 10579950 (Version 2)
Quarter: 2015Q1

REPORT INFORMATION
  Report Type: Spontaneous
  Country: UG (occurrence: UG)
  Receive Date: 20141112
  Receipt Date: 20150304
  Transmission Date: 20150720
  Serious: Yes (Death)
  Sender: FDA-Public Use
  Company Number: UG-ABBVIE-14P-165-1305802-00

PATIENT

DRUGS (1)
  1. SURVANTA [Suspect]
     Active Substance: BERACTANT
     Indication: ACUTE RESPIRATORY DISTRESS SYNDROME
     Route: 065

REACTIONS (3)
  - Product deposit [Unknown]
  - Incorrect product storage [Unknown]
  - Death [Fatal]

NARRATIVE: CASE EVENT DATE: 2013
